FAERS Safety Report 7602325-5 (Version None)
Quarter: 2011Q3

REPORT INFORMATION
  Report Type: 
  Country: None (occurrence: None)
  Receive Date: 20110712
  Receipt Date: 20110701
  Transmission Date: 20111222
  Serious: Yes (Other)
  Sender: FDA-Public Use
  Company Number: ES-BIOGENIDEC-2009BI038995

PATIENT
  Age: 30 Year
  Sex: Female

DRUGS (4)
  1. TYSABRI [Suspect]
     Route: 042
     Dates: start: 20100120, end: 20101019
  2. LIORESAL [Concomitant]
     Indication: MUSCLE SPASTICITY
  3. TYSABRI [Suspect]
     Indication: MULTIPLE SCLEROSIS
     Route: 042
     Dates: start: 20081113, end: 20091029
  4. VESICARE [Concomitant]
     Indication: URINARY INCONTINENCE

REACTIONS (1)
  - BASAL CELL CARCINOMA [None]
